FAERS Safety Report 4942190-8 (Version None)
Quarter: 2006Q1

REPORT INFORMATION
  Report Type: 
  Country: None (occurrence: None)
  Receive Date: 20060313
  Receipt Date: 20050829
  Transmission Date: 20060701
  Serious: No
  Sender: FDA-Public Use
  Company Number: US-GLAXOSMITHKLINE-A0572325A

PATIENT
  Age: 69 Year
  Sex: Male

DRUGS (1)
  1. NICORETTE [Suspect]

REACTIONS (1)
  - DYSGEUSIA [None]
